FAERS Safety Report 23279393 (Version 1)
Quarter: 2023Q4

REPORT INFORMATION
  Report Type: Spontaneous
  Country: ES (occurrence: ES)
  Receive Date: 20231209
  Receipt Date: 20231209
  Transmission Date: 20240110
  Serious: Yes (Other)
  Sender: FDA-Public Use
  Company Number: ES-COSETTE-CP2023ES000220

PATIENT
  Age: 18 Year
  Sex: Female

DRUGS (7)
  1. BENICAR [Suspect]
     Active Substance: OLMESARTAN MEDOXOMIL
     Indication: Proteinuria
     Dosage: MAXIMUM DOSE
     Route: 065
  2. BEVACIZUMAB [Suspect]
     Active Substance: BEVACIZUMAB
     Indication: Neurofibromatosis
     Route: 065
  3. CANDESARTAN [Concomitant]
     Active Substance: CANDESARTAN
     Indication: Proteinuria
     Route: 065
  4. LISINOPRIL [Concomitant]
     Active Substance: LISINOPRIL
     Route: 065
  5. AMLODIPINE [Concomitant]
     Active Substance: AMLODIPINE BESYLATE
     Indication: Product used for unknown indication
     Dosage: MAXIMUM DOSE
     Route: 065
  6. PREDNISONE [Concomitant]
     Active Substance: PREDNISONE
     Indication: Product used for unknown indication
     Route: 065
  7. BRIGATINIB [Concomitant]
     Active Substance: BRIGATINIB
     Indication: Product used for unknown indication
     Route: 065

REACTIONS (2)
  - Glomerulonephritis [Unknown]
  - Hypertension [Unknown]
